FAERS Safety Report 10540920 (Version 1)
Quarter: 2014Q4

REPORT INFORMATION
  Report Type: Spontaneous
  Country: BR (occurrence: None)
  Receive Date: 20141022
  Receipt Date: 20141022
  Transmission Date: 20150529
  Serious: Yes (Other)
  Sender: FDA-Public Use
  Company Number: BR-20140109

PATIENT
  Age: 58 Year
  Sex: Female

DRUGS (1)
  1. DOTAREM [Suspect]
     Active Substance: GADOTERATE MEGLUMINE
     Indication: NUCLEAR MAGNETIC RESONANCE IMAGING
     Dosage: 1 IN 1 D
     Route: 042
     Dates: start: 20140725, end: 20140725

REACTIONS (2)
  - Erythema [None]
  - Rash macular [None]

NARRATIVE: CASE EVENT DATE: 19550923
